FAERS Safety Report 20731307 (Version 1)
Quarter: 2022Q2

REPORT INFORMATION
  Report Type: Spontaneous
  Country: US (occurrence: None)
  Receive Date: 20220420
  Receipt Date: 20220420
  Transmission Date: 20220720
  Serious: Yes (Hospitalization)
  Sender: FDA-Public Use
  Company Number: None

PATIENT
  Age: 79 Year
  Sex: Male
  Weight: 93 kg

DRUGS (14)
  1. EVUSHELD [Suspect]
     Active Substance: CILGAVIMAB\TIXAGEVIMAB
     Indication: Plasma cell myeloma
     Route: 058
     Dates: start: 20220302, end: 20220302
  2. EVUSHELD [Suspect]
     Active Substance: CILGAVIMAB\TIXAGEVIMAB
     Indication: COVID-19 treatment
  3. DARATUMUMAB [Concomitant]
     Active Substance: DARATUMUMAB
  4. CARFILZOMIB [Concomitant]
     Active Substance: CARFILZOMIB
  5. DEXAMETHASONE [Concomitant]
     Active Substance: DEXAMETHASONE
  6. VITAMINS [Concomitant]
     Active Substance: VITAMINS
  7. TAMSULOSIN [Concomitant]
     Active Substance: TAMSULOSIN
  8. FAMOTIDINE [Concomitant]
     Active Substance: FAMOTIDINE
  9. FUROSEMIDE [Concomitant]
     Active Substance: FUROSEMIDE
  10. ACETAMINOPHEN [Concomitant]
     Active Substance: ACETAMINOPHEN
  11. ALLOPURINOL [Concomitant]
     Active Substance: ALLOPURINOL
  12. DABIGATRAN [Concomitant]
     Active Substance: DABIGATRAN
  13. GABAPENTIN [Concomitant]
     Active Substance: GABAPENTIN
  14. POTASSIUM [Concomitant]
     Active Substance: POTASSIUM

REACTIONS (3)
  - Urinary tract infection [None]
  - Sepsis [None]
  - Acute kidney injury [None]

NARRATIVE: CASE EVENT DATE: 20220303
